FAERS Safety Report 10665967 (Version 1)
Quarter: 2014Q4

REPORT INFORMATION
  Report Type: Report from Study
  Country: DE (occurrence: DE)
  Receive Date: 20141219
  Receipt Date: 20141219
  Transmission Date: 20150529
  Serious: Yes (Other)
  Sender: FDA-Public Use
  Company Number: ALCN2014DE006959

PATIENT
  Age: 82 Year
  Sex: Male

DRUGS (2)
  1. DUOTRAV POLYQUAD [Suspect]
     Active Substance: TIMOLOL MALEATE\TRAVOPROST
     Indication: EXFOLIATION GLAUCOMA
     Dosage: 1 DF, QD
     Route: 047
  2. BRINZOLAMIDE [Suspect]
     Active Substance: BRINZOLAMIDE
     Indication: EXFOLIATION GLAUCOMA
     Dosage: 1 DF, BID
     Route: 047

REACTIONS (1)
  - Cataract operation [Recovered/Resolved]
